FAERS Safety Report 14838407 (Version 2)
Quarter: 2018Q2

REPORT INFORMATION
  Report Type: Report from Study
  Country: LT (occurrence: LT)
  Receive Date: 20180502
  Receipt Date: 20180509
  Transmission Date: 20180711
  Serious: Yes (Hospitalization)
  Sender: FDA-Public Use
  Company Number: LT-ASTRAZENECA-2018SE57754

PATIENT
  Age: 825 Month
  Sex: Male

DRUGS (15)
  1. LORAZEPAM. [Concomitant]
     Active Substance: LORAZEPAM
     Indication: DIABETIC NEUROPATHY
     Dosage: DAILY
     Route: 048
     Dates: start: 20170904
  2. ISOSORBIDE MONONITRATE. [Concomitant]
     Active Substance: ISOSORBIDE MONONITRATE
     Indication: MYOCARDIAL ISCHAEMIA
     Route: 048
     Dates: start: 2010
  3. CLOPIDOGREL [Concomitant]
     Active Substance: CLOPIDOGREL BISULFATE
     Indication: ANGINA PECTORIS
     Route: 048
     Dates: start: 20170904
  4. ASPIRIN. [Concomitant]
     Active Substance: ASPIRIN
     Indication: ANGINA PECTORIS
     Route: 048
     Dates: start: 20170904
  5. ATORVASTATIN [Concomitant]
     Active Substance: ATORVASTATIN
     Indication: DYSLIPIDAEMIA
     Route: 048
     Dates: start: 20170915
  6. EPANOVA [Suspect]
     Active Substance: OMEGA-3-CARBOXYLIC ACIDS
     Indication: HYPERTRIGLYCERIDAEMIA
     Route: 048
     Dates: start: 20180315, end: 20180318
  7. RILMENIDINE [Concomitant]
     Active Substance: RILMENIDINE
     Indication: HYPERTENSION
     Route: 048
     Dates: start: 2010
  8. CILOSTAZOL. [Concomitant]
     Active Substance: CILOSTAZOL
     Indication: INTERMITTENT CLAUDICATION
     Dosage: 100 TABLET QD
     Route: 048
     Dates: start: 2010
  9. EPANOVA [Suspect]
     Active Substance: OMEGA-3-CARBOXYLIC ACIDS
     Indication: HYPERTRIGLYCERIDAEMIA
     Route: 048
     Dates: start: 20150324, end: 20170516
  10. EPANOVA [Suspect]
     Active Substance: OMEGA-3-CARBOXYLIC ACIDS
     Indication: HYPERTRIGLYCERIDAEMIA
     Route: 048
     Dates: start: 20170621, end: 201803
  11. METOPROLOL. [Concomitant]
     Active Substance: METOPROLOL
     Indication: MYOCARDIAL ISCHAEMIA
     Route: 048
     Dates: start: 2010
  12. EPANOVA [Suspect]
     Active Substance: OMEGA-3-CARBOXYLIC ACIDS
     Indication: HYPERTRIGLYCERIDAEMIA
     Route: 048
     Dates: start: 201803, end: 20180314
  13. TAMSULOSIN [Concomitant]
     Active Substance: TAMSULOSIN
     Indication: PROSTATIC ADENOMA
     Dosage: 0.4 DAILY
     Route: 048
     Dates: start: 2012
  14. EPANOVA [Suspect]
     Active Substance: OMEGA-3-CARBOXYLIC ACIDS
     Indication: HYPERTRIGLYCERIDAEMIA
     Route: 048
     Dates: start: 20180319
  15. SPIRONOLACTONE. [Concomitant]
     Active Substance: SPIRONOLACTONE
     Indication: CARDIAC FAILURE
     Route: 048
     Dates: start: 2010

REACTIONS (1)
  - Diabetes mellitus [Recovered/Resolved]

NARRATIVE: CASE EVENT DATE: 201802
